FAERS Safety Report 8824368 (Version 1)
Quarter: 2012Q4

REPORT INFORMATION
  Report Type: 
  Country: BR (occurrence: BR)
  Receive Date: 20121004
  Receipt Date: 20121004
  Transmission Date: 20130627
  Serious: Yes (Other)
  Sender: FDA-Public Use
  Company Number: BR-JNJFOC-20120912610

PATIENT
  Age: 41 Year
  Sex: Female
  Weight: 74 kg

DRUGS (11)
  1. REMICADE [Suspect]
     Indication: CROHN^S DISEASE
     Route: 042
     Dates: start: 20120914
  2. REMICADE [Suspect]
     Indication: CROHN^S DISEASE
     Route: 042
     Dates: start: 201012
  3. AZATHIOPRIN [Concomitant]
     Route: 065
  4. FORMOTEROL W/BUDESONIDE [Concomitant]
     Route: 055
  5. OMEPRAZOLE [Concomitant]
     Route: 065
  6. VITAMIN B12 [Concomitant]
     Route: 065
  7. ALL OTHER THERAPEUTICS [Concomitant]
     Route: 065
  8. FLUTICASONE [Concomitant]
     Route: 045
  9. BROMOPRIDE [Concomitant]
     Route: 065
  10. HYDROCORTISONE [Concomitant]
     Indication: PREMEDICATION
     Dosage: 200 mg of hydrocortisone in 100 ml of saline
     Route: 065
  11. DIPHENHYDRAMINE [Concomitant]
     Indication: PREMEDICATION
     Dosage: 50 mg in 100 ml
     Route: 065

REACTIONS (4)
  - Rash [Recovered/Resolved]
  - Petechiae [Recovered/Resolved]
  - Pruritus generalised [Recovered/Resolved]
  - Infusion related reaction [Recovered/Resolved]
